FAERS Safety Report 21648797 (Version 1)
Quarter: 2022Q4

REPORT INFORMATION
  Report Type: Spontaneous
  Country: CN (occurrence: CN)
  Receive Date: 20221128
  Receipt Date: 20221128
  Transmission Date: 20230112
  Serious: Yes (Death)
  Sender: FDA-Public Use
  Company Number: CN-ALKEM LABORATORIES LIMITED-CN-ALKEM-2022-10936

PATIENT
  Age: 56 Year
  Sex: Female

DRUGS (1)
  1. TACROLIMUS [Suspect]
     Active Substance: TACROLIMUS
     Indication: Interstitial lung disease
     Dosage: 3 MILLIGRAM, QD
     Route: 065

REACTIONS (2)
  - Fungal infection [Fatal]
  - Epstein-Barr virus test positive [Fatal]
